FAERS Safety Report 16251217 (Version 1)
Quarter: 2019Q2

REPORT INFORMATION
  Report Type: Spontaneous
  Country: US (occurrence: US)
  Receive Date: 20190426
  Receipt Date: 20190426
  Transmission Date: 20190711
  Serious: Yes (Other)
  Sender: FDA-Public Use
  Company Number: None

PATIENT
  Age: 64 Year
  Sex: Female
  Weight: 78.75 kg

DRUGS (4)
  1. ETODOLAC. [Suspect]
     Active Substance: ETODOLAC
     Indication: BURSITIS
     Dosage: ?          QUANTITY:1 TABLET(S);?
     Route: 048
  2. CLARITIN [Concomitant]
     Active Substance: LORATADINE
  3. LISINOPRIL. [Concomitant]
     Active Substance: LISINOPRIL
  4. ROSUVASTATIN. [Concomitant]
     Active Substance: ROSUVASTATIN

REACTIONS (1)
  - Rash [None]

NARRATIVE: CASE EVENT DATE: 20190426
